FAERS Safety Report 8366006-5 (Version None)
Quarter: 2012Q2

REPORT INFORMATION
  Report Type: 
  Country: None (occurrence: None)
  Receive Date: 20120517
  Receipt Date: 20120514
  Transmission Date: 20120825
  Serious: No
  Sender: FDA-Public Use
  Company Number: US-PFIZER INC-2012117234

PATIENT
  Sex: Male
  Weight: 106 kg

DRUGS (5)
  1. EFFEXOR [Suspect]
     Indication: ARTHRALGIA
     Dosage: 150 MG, 1X/DAY
     Route: 048
     Dates: start: 20120401
  2. LYRICA [Suspect]
     Indication: ARTHRALGIA
     Dosage: 150 MG, 1X/DAY
     Route: 048
     Dates: start: 20120401, end: 20120401
  3. LYRICA [Suspect]
     Dosage: 150 MG, 2X/DAY
     Route: 048
     Dates: start: 20120401
  4. SKELAXIN [Concomitant]
     Dosage: 800 MG, 3X/DAY
     Dates: start: 20120401
  5. CYCLOBENZAPRINE [Concomitant]
     Indication: MUSCLE SPASMS
     Dosage: UNK

REACTIONS (2)
  - DRUG INEFFECTIVE FOR UNAPPROVED INDICATION [None]
  - ARTHRALGIA [None]
